FAERS Safety Report 8322339-X (Version None)
Quarter: 2012Q2

REPORT INFORMATION
  Report Type: 
  Country: None (occurrence: None)
  Receive Date: 20120430
  Receipt Date: 20120423
  Transmission Date: 20120825
  Serious: Yes (Other)
  Sender: FDA-Public Use
  Company Number: US-ASTRAZENECA-2012SE20721

PATIENT
  Age: 75 Year
  Sex: Male

DRUGS (2)
  1. SYMBICORT [Suspect]
     Route: 055
  2. WARFARIN SODIUM [Suspect]
     Route: 065
     Dates: start: 20050101

REACTIONS (4)
  - PETECHIAE [None]
  - COAGULATION TIME PROLONGED [None]
  - CEREBRAL HAEMORRHAGE [None]
  - COAGULOPATHY [None]
